FAERS Safety Report 6895739-2 (Version None)
Quarter: 2010Q3

REPORT INFORMATION
  Report Type: 
  Country: None (occurrence: None)
  Receive Date: 20100730
  Receipt Date: 20100730
  Transmission Date: 20110219
  Serious: Yes (Other)
  Sender: FDA-Public Use
  Company Number: None

PATIENT
  Age: 35 Year
  Sex: Female
  Weight: 61.6892 kg

DRUGS (1)
  1. NITROFURANTOIN MONOHYDRATE/MACROCRYSTALS [Suspect]
     Indication: CYSTITIS
     Dosage: 100 MG 2X A DAY PO
     Route: 048
     Dates: start: 20100720, end: 20100726

REACTIONS (8)
  - ASTHENIA [None]
  - CHILLS [None]
  - DYSPNOEA [None]
  - NAUSEA [None]
  - PAIN [None]
  - PRODUCT QUALITY ISSUE [None]
  - PYREXIA [None]
  - TREMOR [None]
